FAERS Safety Report 13736402 (Version 1)
Quarter: 2017Q3

REPORT INFORMATION
  Report Type: Spontaneous
  Country: IT (occurrence: IT)
  Receive Date: 20170710
  Receipt Date: 20170710
  Transmission Date: 20171127
  Serious: Yes (Death)
  Sender: FDA-Public Use
  Company Number: IT-PFIZER INC-2017291837

PATIENT

DRUGS (1)
  1. LIDOCAINE HCL [Suspect]
     Active Substance: LIDOCAINE HYDROCHLORIDE
     Dosage: UNK
     Route: 048

REACTIONS (2)
  - Intentional product misuse [Fatal]
  - Completed suicide [Fatal]
